FAERS Safety Report 26049896 (Version 1)
Quarter: 2025Q4

REPORT INFORMATION
  Report Type: Spontaneous
  Country: JP (occurrence: JP)
  Receive Date: 20251115
  Receipt Date: 20251115
  Transmission Date: 20260117
  Serious: Yes (Other)
  Sender: MERCK SHARP & DOHME LLC
  Company Number: JP-009507513-2348605

PATIENT
  Age: 61 Year
  Sex: Female

DRUGS (2)
  1. KEYTRUDA [Suspect]
     Active Substance: PEMBROLIZUMAB
     Indication: Clear cell endometrial carcinoma
     Dosage: 200
     Dates: start: 20230616
  2. LENVIMA [Suspect]
     Active Substance: LENVATINIB
     Indication: Clear cell endometrial carcinoma
     Dosage: 10
     Dates: start: 20230616

REACTIONS (8)
  - Thrombocytopenia [Unknown]
  - Urinary tract infection [Unknown]
  - Hypothyroidism [Unknown]
  - Eating disorder [Unknown]
  - Immune-mediated enterocolitis [Unknown]
  - Malignant neoplasm progression [Unknown]
  - Therapy partial responder [Unknown]
  - Eastern Cooperative Oncology Group performance status worsened [Unknown]
